FAERS Safety Report 5107036-6 (Version None)
Quarter: 2006Q3

REPORT INFORMATION
  Report Type: 
  Country: None (occurrence: None)
  Receive Date: 20060913
  Receipt Date: 20060907
  Transmission Date: 20061208
  Serious: Yes (Death)
  Sender: FDA-Public Use
  Company Number: 229601

PATIENT
  Age: 70 Year
  Sex: Female

DRUGS (1)
  1. ACTIVACIN (ALTEPLASE)PWDR + SOLVENT, INFUSION SOLN [Suspect]
     Indication: CEREBROVASCULAR DISORDER
     Dosage: 41 MG, SINGLE, INTRAVENOUS
     Route: 042

REACTIONS (2)
  - AORTIC ANEURYSM RUPTURE [None]
  - DEPRESSED LEVEL OF CONSCIOUSNESS [None]
